FAERS Safety Report 6623474-4 (Version None)
Quarter: 2010Q1

REPORT INFORMATION
  Report Type: 
  Country: None (occurrence: None)
  Receive Date: 20100310
  Receipt Date: 20100301
  Transmission Date: 20100710
  Serious: Yes (Hospitalization)
  Sender: FDA-Public Use
  Company Number: IT-BRISTOL-MYERS SQUIBB COMPANY-15004385

PATIENT
  Age: 60 Year
  Sex: Male

DRUGS (6)
  1. GLUCOPHAGE [Suspect]
     Indication: TYPE 2 DIABETES MELLITUS
     Dosage: GLUCOPHAGE 1000MG
     Route: 048
     Dates: start: 20070101, end: 20100204
  2. GLICONORM [Suspect]
     Indication: TYPE 2 DIABETES MELLITUS
     Dosage: 1DF-1 U (5MG+ 500MG)
     Route: 048
     Dates: start: 20100202, end: 20100204
  3. BROMAZEPAM [Concomitant]
     Route: 048
  4. OMEPRAZOLE [Concomitant]
     Route: 048
  5. BISOPROLOL FUMARATE [Concomitant]
  6. LYRICA [Concomitant]

REACTIONS (2)
  - HYPOGLYCAEMIA [None]
  - SOPOR [None]
